FAERS Safety Report 4650625-3 (Version None)
Quarter: 2005Q2

REPORT INFORMATION
  Report Type: 
  Country: None (occurrence: None)
  Receive Date: 20050503
  Receipt Date: 20050211
  Transmission Date: 20051028
  Serious: Yes (Other)
  Sender: FDA-Public Use
  Company Number: PHFR2005GB00887

PATIENT
  Age: 58 Year
  Sex: Female

DRUGS (6)
  1. ZOMETA [Suspect]
     Indication: METASTASES TO BONE
     Dosage: 4MG DOSE
     Route: 042
     Dates: start: 20050110
  2. FULVESTRANT [Concomitant]
     Indication: METASTASES TO BONE
     Dosage: 250 MG, QMO
     Route: 030
     Dates: start: 20050110
  3. LANSOPRAZOLE [Concomitant]
     Indication: DYSPEPSIA
     Dosage: 30 MG, PRN
     Route: 048
  4. FOLIC ACID [Concomitant]
     Dosage: 5MG/DAY
     Route: 048
  5. LEVOTHYROXINE SODIUM [Concomitant]
     Indication: HYPOTHYROIDISM
     Dosage: 100UG/DAY
     Route: 048
  6. MORPHINE SULFATE [Concomitant]
     Indication: BONE PAIN
     Dosage: 30MG/DAY
     Route: 048

REACTIONS (10)
  - DIZZINESS [None]
  - DYSGEUSIA [None]
  - DYSPNOEA [None]
  - FEELING HOT AND COLD [None]
  - FLUSHING [None]
  - INJECTION SITE NERVE DAMAGE [None]
  - INJECTION SITE PAIN [None]
  - MUSCULOSKELETAL STIFFNESS [None]
  - THROAT TIGHTNESS [None]
  - WHEEZING [None]
